FAERS Safety Report 9202042 (Version 3)
Quarter: 2013Q2

REPORT INFORMATION
  Report Type: Spontaneous
  Country: US (occurrence: None)
  Receive Date: 20130328
  Receipt Date: 20130514
  Transmission Date: 20140414
  Serious: Yes (Other)
  Sender: FDA-Public Use
  Company Number: JPI-P-030768

PATIENT
  Age: 42 Year
  Sex: Male
  Weight: 117.48 kg

DRUGS (13)
  1. XYREM [Suspect]
     Indication: NARCOLEPSY
     Dosage: 4.5 GM (2.25 GM, 2 IN 1 D), ORAL
     Route: 048
     Dates: start: 201301, end: 2013
  2. LIDOCAINE [Suspect]
     Indication: PRODUCT USED FOR UNKNOWN INDICATION
  3. LAMOTRIGINE [Concomitant]
  4. MECLIZINE [Concomitant]
  5. VITAMIN B [Concomitant]
  6. CLONAZEPAM [Concomitant]
  7. TOPIRAMATE [Concomitant]
  8. PAROXETINE [Concomitant]
  9. PRIMIDONE [Concomitant]
  10. POTASSIUM [Concomitant]
  11. FOLIC ACID [Concomitant]
  12. RANITIDINE [Concomitant]
  13. PANTOPRAZOLE [Concomitant]

REACTIONS (14)
  - Blood pressure increased [None]
  - Weight decreased [None]
  - Enuresis [None]
  - Headache [None]
  - Pain in extremity [None]
  - Condition aggravated [None]
  - Fall [None]
  - Head injury [None]
  - Exostosis [None]
  - Convulsion [None]
  - Insomnia [None]
  - Stress [None]
  - Spondylitis [None]
  - Muscle spasms [None]
